FAERS Safety Report 5368909-2 (Version None)
Quarter: 2007Q2

REPORT INFORMATION
  Report Type: 
  Country: None (occurrence: None)
  Receive Date: 20070625
  Receipt Date: 20070104
  Transmission Date: 20071010
  Serious: No
  Sender: FDA-Public Use
  Company Number: US-ASTRAZENECA-2006UW18475

PATIENT
  Age: 76 Year
  Sex: Female
  Weight: 70.3 kg

DRUGS (19)
  1. CRESTOR [Suspect]
     Indication: BLOOD CHOLESTEROL INCREASED
     Route: 048
  2. LASIX [Concomitant]
     Indication: OEDEMA
     Route: 048
  3. AVAPRO [Concomitant]
     Route: 048
  4. NASACORT AQ [Concomitant]
     Dosage: 2 PUFFS EACH NOSTRIL QD
  5. MAXAIR MDI [Concomitant]
     Dosage: 2 PUFFS BID
  6. ALLOPURINOL [Concomitant]
     Route: 048
  7. VITAMIN CAP [Concomitant]
  8. MELATONIN [Concomitant]
  9. THYROID TAB [Concomitant]
     Route: 048
  10. AMARYL [Concomitant]
     Route: 048
  11. LANTUS [Concomitant]
     Dosage: 15 UNITS HS
     Route: 057
  12. PROTONIX [Concomitant]
     Route: 048
  13. ENABLEX [Concomitant]
     Route: 048
  14. METAMUCIL [Concomitant]
  15. GLUCOSAMINE + CHONDROITIN [Concomitant]
  16. SKELAXIN [Concomitant]
     Route: 048
  17. NEURONTIN [Concomitant]
     Route: 048
  18. VICODIN [Concomitant]
  19. ALPRAZOLAM [Concomitant]
     Route: 048

REACTIONS (1)
  - DRY MOUTH [None]
